FAERS Safety Report 19284871 (Version 1)
Quarter: 2021Q2

REPORT INFORMATION
  Report Type: Spontaneous
  Country: US (occurrence: US)
  Receive Date: 20210521
  Receipt Date: 20210521
  Transmission Date: 20210717
  Serious: No
  Sender: FDA-Public Use
  Company Number: US-RADIUS HEALTH INC.-2020US001568

PATIENT
  Sex: Female

DRUGS (1)
  1. TYMLOS [Suspect]
     Active Substance: ABALOPARATIDE
     Indication: BONE DISORDER
     Dosage: 80 MCG, DAILY
     Route: 058
     Dates: start: 20200327

REACTIONS (4)
  - Vomiting [Unknown]
  - Nausea [Unknown]
  - Headache [Unknown]
  - Off label use [Unknown]
